FAERS Safety Report 15316365 (Version 3)
Quarter: 2019Q3

REPORT INFORMATION
  Report Type: Spontaneous
  Country: AU (occurrence: AU)
  Receive Date: 20180824
  Receipt Date: 20190913
  Transmission Date: 20191004
  Serious: Yes (Death, Other)
  Sender: FDA-Public Use
  Company Number: AU-SAKK-2018SA229772AA

PATIENT
  Sex: Female

DRUGS (1)
  1. LEMTRADA [Suspect]
     Active Substance: ALEMTUZUMAB
     Dosage: UNK, UNK
     Route: 041

REACTIONS (3)
  - Therapy non-responder [Unknown]
  - Stem cell transplant [Fatal]
  - Complications of transplant surgery [Fatal]
